FAERS Safety Report 7604672-X (Version None)
Quarter: 2011Q3

REPORT INFORMATION
  Report Type: 
  Country: None (occurrence: None)
  Receive Date: 20110712
  Receipt Date: 20110701
  Transmission Date: 20111222
  Serious: No
  Sender: FDA-Public Use
  Company Number: US-ASTRAZENECA-2011SE18658

PATIENT
  Age: 32 Year
  Sex: Female
  Weight: 73.9 kg

DRUGS (6)
  1. SEROQUEL XR [Suspect]
     Route: 048
  2. SEROQUEL XR [Suspect]
     Route: 048
  3. NEURONTIN [Concomitant]
     Indication: BIPOLAR DISORDER
     Dates: start: 20110415
  4. SEROQUEL XR [Suspect]
     Indication: INSOMNIA
     Route: 048
     Dates: start: 20110110
  5. SEROQUEL XR [Suspect]
     Route: 048
  6. NEURONTIN [Concomitant]
     Indication: HALLUCINATION, AUDITORY
     Dates: start: 20110415

REACTIONS (2)
  - ENDOMETRIOSIS [None]
  - OFF LABEL USE [None]
